FAERS Safety Report 18507365 (Version 1)
Quarter: 2020Q4

REPORT INFORMATION
  Report Type: Report from Study
  Country: US (occurrence: US)
  Receive Date: 20201116
  Receipt Date: 20201116
  Transmission Date: 20210114
  Serious: Yes (Other)
  Sender: FDA-Public Use
  Company Number: NVSC2020US302890

PATIENT
  Age: 20 Year
  Sex: Female

DRUGS (2)
  1. LOESTRIN NOS [Concomitant]
     Active Substance: ETHINYL ESTRADIOL\NORETHINDRONE ACETATE
     Indication: PRODUCT USED FOR UNKNOWN INDICATION
     Dosage: UNK
     Route: 065
     Dates: start: 20190111
  2. ZOPHREN CP [Suspect]
     Active Substance: ONDANSETRON HYDROCHLORIDE
     Indication: NAUSEA
     Dosage: 4 MG, QD
     Route: 042
     Dates: start: 20200102, end: 20200102

REACTIONS (5)
  - Blood lactate dehydrogenase increased [Unknown]
  - Blood pressure diastolic increased [Unknown]
  - Alanine aminotransferase increased [Recovered/Resolved]
  - Neutrophil count decreased [Unknown]
  - Body temperature decreased [Unknown]

NARRATIVE: CASE EVENT DATE: 20200114
